FAERS Safety Report 7039461-0 (Version None)
Quarter: 2010Q4

REPORT INFORMATION
  Report Type: 
  Country: None (occurrence: None)
  Receive Date: 20101012
  Receipt Date: 20100930
  Transmission Date: 20110411
  Serious: Yes (Other)
  Sender: FDA-Public Use
  Company Number: US-ROCHE-730976

PATIENT
  Age: 51 Year
  Sex: Female

DRUGS (2)
  1. AVASTIN [Suspect]
     Indication: OVARIAN CANCER
     Dosage: 10 CYCLES.
     Route: 065
     Dates: end: 20100101
  2. DOCETAXEL [Concomitant]
     Indication: OVARIAN CANCER
     Dosage: 5 CYCLES
     Route: 065

REACTIONS (2)
  - BLOOD CREATININE INCREASED [None]
  - UNEVALUABLE EVENT [None]
